FAERS Safety Report 25460375 (Version 1)
Quarter: 2025Q2

REPORT INFORMATION
  Report Type: Spontaneous
  Country: US (occurrence: US)
  Receive Date: 20250620
  Receipt Date: 20250620
  Transmission Date: 20250716
  Serious: Yes (Other)
  Sender: MYLAN
  Company Number: US-MYLANLABS-2025M1050701

PATIENT
  Age: 40 Year
  Sex: Female

DRUGS (36)
  1. METHOTREXATE [Suspect]
     Active Substance: METHOTREXATE
     Indication: Gestational trophoblastic tumour
     Dosage: 0.4 MILLIGRAM/KILOGRAM, QD (FOR 5?CONSECUTIVE DAYS EVERY 14?DAYS)
  2. METHOTREXATE [Suspect]
     Active Substance: METHOTREXATE
     Dosage: 0.4 MILLIGRAM/KILOGRAM, QD (FOR 5?CONSECUTIVE DAYS EVERY 14?DAYS)
     Route: 030
  3. METHOTREXATE [Suspect]
     Active Substance: METHOTREXATE
     Dosage: 0.4 MILLIGRAM/KILOGRAM, QD (FOR 5?CONSECUTIVE DAYS EVERY 14?DAYS)
     Route: 030
  4. METHOTREXATE [Suspect]
     Active Substance: METHOTREXATE
     Dosage: 0.4 MILLIGRAM/KILOGRAM, QD (FOR 5?CONSECUTIVE DAYS EVERY 14?DAYS)
  5. METHOTREXATE [Suspect]
     Active Substance: METHOTREXATE
     Indication: Gestational trophoblastic tumour
  6. METHOTREXATE [Suspect]
     Active Substance: METHOTREXATE
     Route: 065
  7. METHOTREXATE [Suspect]
     Active Substance: METHOTREXATE
     Route: 065
  8. METHOTREXATE [Suspect]
     Active Substance: METHOTREXATE
  9. TRIAMCINOLONE [Suspect]
     Active Substance: TRIAMCINOLONE
     Indication: Skin lesion
     Dosage: UNK UNK, BID
  10. TRIAMCINOLONE [Suspect]
     Active Substance: TRIAMCINOLONE
     Dosage: UNK UNK, BID
     Route: 065
  11. TRIAMCINOLONE [Suspect]
     Active Substance: TRIAMCINOLONE
     Dosage: UNK UNK, BID
     Route: 065
  12. TRIAMCINOLONE [Suspect]
     Active Substance: TRIAMCINOLONE
     Dosage: UNK UNK, BID
  13. FEXOFENADINE [Suspect]
     Active Substance: FEXOFENADINE HYDROCHLORIDE
     Indication: Pruritus
     Dosage: 180 MILLIGRAM, QD
  14. FEXOFENADINE [Suspect]
     Active Substance: FEXOFENADINE HYDROCHLORIDE
     Dosage: 180 MILLIGRAM, QD
     Route: 065
  15. FEXOFENADINE [Suspect]
     Active Substance: FEXOFENADINE HYDROCHLORIDE
     Dosage: 180 MILLIGRAM, QD
     Route: 065
  16. FEXOFENADINE [Suspect]
     Active Substance: FEXOFENADINE HYDROCHLORIDE
     Dosage: 180 MILLIGRAM, QD
  17. CORTISONE [Concomitant]
     Active Substance: CORTISONE
     Indication: Drug therapy
  18. CORTISONE [Concomitant]
     Active Substance: CORTISONE
     Route: 065
  19. CORTISONE [Concomitant]
     Active Substance: CORTISONE
     Route: 065
  20. CORTISONE [Concomitant]
     Active Substance: CORTISONE
  21. CALAMINE [Concomitant]
     Active Substance: CALAMINE\FERRIC OXIDE RED\ZINC OXIDE
     Indication: Drug therapy
  22. CALAMINE [Concomitant]
     Active Substance: CALAMINE\FERRIC OXIDE RED\ZINC OXIDE
     Route: 065
  23. CALAMINE [Concomitant]
     Active Substance: CALAMINE\FERRIC OXIDE RED\ZINC OXIDE
     Route: 065
  24. CALAMINE [Concomitant]
     Active Substance: CALAMINE\FERRIC OXIDE RED\ZINC OXIDE
  25. TEA TREE [Concomitant]
     Active Substance: GLYCERIN
     Indication: Drug therapy
  26. TEA TREE [Concomitant]
     Active Substance: GLYCERIN
     Route: 065
  27. TEA TREE [Concomitant]
     Active Substance: GLYCERIN
     Route: 065
  28. TEA TREE [Concomitant]
     Active Substance: GLYCERIN
  29. PREDNISONE [Concomitant]
     Active Substance: PREDNISONE
     Indication: Pemphigoid gestationis
     Dosage: 20 MILLIGRAM, QD
  30. PREDNISONE [Concomitant]
     Active Substance: PREDNISONE
     Dosage: 20 MILLIGRAM, QD
  31. PREDNISONE [Concomitant]
     Active Substance: PREDNISONE
     Dosage: 20 MILLIGRAM, QD
     Route: 065
  32. PREDNISONE [Concomitant]
     Active Substance: PREDNISONE
     Dosage: 20 MILLIGRAM, QD
     Route: 065
  33. PREDNISONE [Concomitant]
     Active Substance: PREDNISONE
     Dosage: 10 MILLIGRAM, QD
  34. PREDNISONE [Concomitant]
     Active Substance: PREDNISONE
     Dosage: 10 MILLIGRAM, QD
  35. PREDNISONE [Concomitant]
     Active Substance: PREDNISONE
     Dosage: 10 MILLIGRAM, QD
     Route: 065
  36. PREDNISONE [Concomitant]
     Active Substance: PREDNISONE
     Dosage: 10 MILLIGRAM, QD
     Route: 065

REACTIONS (5)
  - Drug ineffective [Unknown]
  - Toxicity to various agents [Unknown]
  - Neutropenia [Unknown]
  - Mucosal inflammation [Unknown]
  - Off label use [Unknown]
